FAERS Safety Report 12882575 (Version 1)
Quarter: 2016Q4

REPORT INFORMATION
  Report Type: Spontaneous
  Country: US (occurrence: US)
  Receive Date: 20161025
  Receipt Date: 20161025
  Transmission Date: 20170207
  Serious: No
  Sender: FDA-Public Use
  Company Number: US-PFIZER INC-2016494328

PATIENT
  Age: 45 Year

DRUGS (9)
  1. BACITRACIN. [Suspect]
     Active Substance: BACITRACIN
  2. TETANUS TOXOID [Suspect]
     Active Substance: TETANUS TOXOIDS
     Indication: IMMUNISATION
  3. GRAMICIDIN [Suspect]
     Active Substance: GRAMICIDIN
  4. ESTROGENS CONJUGATED [Suspect]
     Active Substance: ESTROGENS, CONJUGATED
  5. HYDROCODONE BITARTRATE. [Suspect]
     Active Substance: HYDROCODONE BITARTRATE
  6. LIDOCAINE HCL [Suspect]
     Active Substance: LIDOCAINE HYDROCHLORIDE
  7. NEOMYCIN SULFATE. [Suspect]
     Active Substance: NEOMYCIN SULFATE
  8. POLYMYXIN B. [Suspect]
     Active Substance: POLYMYXIN B
  9. POLYMYXIN B SULFATE. [Suspect]
     Active Substance: POLYMYXIN B SULFATE

REACTIONS (1)
  - Drug hypersensitivity [Unknown]
